FAERS Safety Report 17419701 (Version 1)
Quarter: 2020Q1

REPORT INFORMATION
  Report Type: Spontaneous
  Country: US (occurrence: US)
  Receive Date: 20200214
  Receipt Date: 20200214
  Transmission Date: 20200409
  Serious: No
  Sender: FDA-Public Use
  Company Number: None

PATIENT
  Age: 88 Year
  Sex: Female
  Weight: 77 kg

DRUGS (9)
  1. CELECOXIB 200 MG [Concomitant]
     Active Substance: CELECOXIB
  2. REFRESH EYE DROPS [Concomitant]
  3. OMEPRAZOLE 20 MG [Concomitant]
     Active Substance: OMEPRAZOLE
  4. FLUTICASONE 50 MCG NASAL SPRAY [Concomitant]
  5. MORPHINE [Suspect]
     Active Substance: MORPHINE
     Indication: PAIN
     Dosage: ?          OTHER FREQUENCY:ONCE;?
     Route: 041
  6. CIMETIDINE 200 MG [Concomitant]
  7. MENTHOL TOPICAL [Concomitant]
  8. ONDANSETRON 4 MG [Concomitant]
     Active Substance: ONDANSETRON
  9. RIVAROXABAN 20 MG [Concomitant]
     Active Substance: RIVAROXABAN

REACTIONS (6)
  - Nausea [None]
  - Oxygen saturation decreased [None]
  - Vomiting [None]
  - Loss of consciousness [None]
  - Diarrhoea [None]
  - Abdominal pain [None]

NARRATIVE: CASE EVENT DATE: 20191020
